FAERS Safety Report 24364815 (Version 3)
Quarter: 2025Q2

REPORT INFORMATION
  Report Type: Spontaneous
  Country: JP (occurrence: JP)
  Receive Date: 20240926
  Receipt Date: 20250529
  Transmission Date: 20250716
  Serious: Yes (Hospitalization)
  Sender: ROCHE
  Company Number: JP-CHUGAI-2024032846

PATIENT
  Age: 16 Year
  Sex: Male
  Weight: 43 kg

DRUGS (3)
  1. HEMLIBRA [Suspect]
     Active Substance: EMICIZUMAB-KXWH
     Indication: Haemophilia A without inhibitors
     Route: 058
     Dates: start: 201907
  2. HEMLIBRA [Suspect]
     Active Substance: EMICIZUMAB-KXWH
     Route: 058
     Dates: start: 202204
  3. HEMLIBRA [Suspect]
     Active Substance: EMICIZUMAB-KXWH
     Route: 058
     Dates: start: 202206

REACTIONS (3)
  - Haemorrhage [Not Recovered/Not Resolved]
  - Mass [Unknown]
  - Haemorrhage subcutaneous [Not Recovered/Not Resolved]

NARRATIVE: CASE EVENT DATE: 20230512
